FAERS Safety Report 24703974 (Version 1)
Quarter: 2024Q4

REPORT INFORMATION
  Report Type: Report from Study
  Country: PL (occurrence: PL)
  Receive Date: 20241206
  Receipt Date: 20241206
  Transmission Date: 20250114
  Serious: Yes (Hospitalization, Other)
  Sender: AUROBINDO
  Company Number: PL-AUROBINDO-AUR-APL-2024-058889

PATIENT
  Age: 41 Year
  Sex: Male

DRUGS (8)
  1. SERTRALINE [Suspect]
     Active Substance: SERTRALINE HYDROCHLORIDE
     Indication: Product used for unknown indication
     Dosage: 100 MILLIGRAM, ONCE A DAY
     Route: 065
  2. .DELTA.9-TETRAHYDROCANNABINOL\CANNABIDIOL\HERBALS [Suspect]
     Active Substance: .DELTA.9-TETRAHYDROCANNABINOL\CANNABIDIOL\HERBALS
     Indication: Cancer pain
     Dosage: UNK
     Route: 065
  3. HERBALS\TETRAHYDROCANNABINOL UNSPECIFIED [Suspect]
     Active Substance: HERBALS\TETRAHYDROCANNABINOL UNSPECIFIED
     Indication: Cancer pain
     Dosage: UNK
     Route: 065
  4. CANNABIDIOL [Suspect]
     Active Substance: CANNABIDIOL
     Indication: Cancer pain
     Dosage: UNK
     Route: 065
  5. OXYCODONE [Concomitant]
     Active Substance: OXYCODONE
     Indication: Product used for unknown indication
     Dosage: UNK
     Route: 065
  6. METAMIZOLE [Concomitant]
     Active Substance: METAMIZOLE
     Indication: Product used for unknown indication
     Dosage: UNK
     Route: 065
  7. KETOPROFEN [Concomitant]
     Active Substance: KETOPROFEN
     Indication: Product used for unknown indication
     Dosage: UNK
     Route: 065
  8. ZOLEDRONIC ACID [Concomitant]
     Active Substance: ZOLEDRONIC ACID
     Indication: Product used for unknown indication
     Dosage: UNK
     Route: 065

REACTIONS (3)
  - Ataxia [Unknown]
  - Psychomotor hyperactivity [Unknown]
  - Coma [Unknown]
